FAERS Safety Report 14660118 (Version 1)
Quarter: 2018Q1

REPORT INFORMATION
  Report Type: Spontaneous
  Country: US (occurrence: US)
  Receive Date: 20180320
  Receipt Date: 20180320
  Transmission Date: 20180509
  Serious: Yes (Other)
  Sender: FDA-Public Use
  Company Number: US-CMP PHARMA-2018CMP00005

PATIENT
  Age: 11 Year
  Sex: Male

DRUGS (5)
  1. TRIAMCINOLONE [Suspect]
     Active Substance: TRIAMCINOLONE
     Indication: ARTHRALGIA
     Dosage: 40 MG, ONCE
     Route: 014
  2. ATAZANAVIR. [Concomitant]
     Active Substance: ATAZANAVIR SULFATE
     Route: 065
  3. RITONAVIR. [Suspect]
     Active Substance: RITONAVIR
     Indication: HIV INFECTION
     Route: 065
  4. EPZICOM [Concomitant]
     Active Substance: ABACAVIR SULFATE\LAMIVUDINE
     Route: 065
  5. DIDANOSINE. [Concomitant]
     Active Substance: DIDANOSINE
     Route: 065

REACTIONS (3)
  - Drug interaction [Recovered/Resolved]
  - Cushing^s syndrome [Recovering/Resolving]
  - Adrenal suppression [Recovering/Resolving]
